FAERS Safety Report 5162833-6 (Version None)
Quarter: 2006Q4

REPORT INFORMATION
  Report Type: 
  Country: None (occurrence: None)
  Receive Date: 20061201
  Receipt Date: 20010125
  Transmission Date: 20070319
  Serious: Yes (Hospitalization)
  Sender: FDA-Public Use
  Company Number: FR-GLAXOSMITHKLINE-B0097290A

PATIENT
  Age: 79 Year
  Sex: Female
  Weight: 72 kg

DRUGS (3)
  1. ZOVIRAX [Suspect]
     Indication: ENCEPHALITIS HERPES
     Dosage: 750MG THREE TIMES PER DAY
     Route: 042
     Dates: start: 20001121, end: 20001127
  2. OFLOCET [Concomitant]
     Dosage: 200MG PER DAY
     Route: 042
     Dates: start: 20001121, end: 20001122
  3. ROCEPHIN [Concomitant]
     Dosage: 1G PER DAY
     Route: 042
     Dates: start: 20001121, end: 20001122

REACTIONS (3)
  - BLOOD CREATININE INCREASED [None]
  - CREATININE RENAL CLEARANCE DECREASED [None]
  - RENAL FAILURE ACUTE [None]
